FAERS Safety Report 18039319 (Version 3)
Quarter: 2020Q4

REPORT INFORMATION
  Report Type: Spontaneous
  Country: US (occurrence: US)
  Receive Date: 20200717
  Receipt Date: 20201029
  Transmission Date: 20210113
  Serious: Yes (Other)
  Sender: FDA-Public Use
  Company Number: US-GILEAD-2020-0481713

PATIENT
  Age: 59 Year
  Sex: Female

DRUGS (1)
  1. ATRIPLA [Suspect]
     Active Substance: EFAVIRENZ\EMTRICITABINE\TENOFOVIR DISOPROXIL FUMARATE
     Indication: HIV INFECTION
     Dosage: UNK
     Route: 048
     Dates: start: 2006, end: 201809

REACTIONS (6)
  - Chronic kidney disease [Recovered/Resolved]
  - Osteoporosis [Unknown]
  - Wrist fracture [Unknown]
  - Tooth loss [Unknown]
  - Bone density decreased [Unknown]
  - Renal failure [Unknown]

NARRATIVE: CASE EVENT DATE: 201901
